FAERS Safety Report 7133559-4 (Version None)
Quarter: 2010Q4

REPORT INFORMATION
  Report Type: 
  Country: None (occurrence: None)
  Receive Date: 20101202
  Receipt Date: 20101103
  Transmission Date: 20110411
  Serious: Yes (Other)
  Sender: FDA-Public Use
  Company Number: PHHY2010BE63521

PATIENT
  Sex: Male

DRUGS (1)
  1. RILATINE [Suspect]
     Dosage: UNK DOSE AT NOON

REACTIONS (2)
  - DRUG HYPERSENSITIVITY [None]
  - REBOUND EFFECT [None]
